FAERS Safety Report 9548228 (Version 1)
Quarter: 2013Q3

REPORT INFORMATION
  Report Type: Spontaneous
  Country: US (occurrence: None)
  Receive Date: 20130702
  Receipt Date: 20130702
  Transmission Date: 20140515
  Serious: Yes (Hospitalization)
  Sender: FDA-Public Use
  Company Number: NUBN20120002

PATIENT
  Age: 1 Day
  Sex: Female

DRUGS (1)
  1. NUBAIN INJECTION ( NALBUPHINE HYDROCHLORIDE) (SOLUTION) [Suspect]
     Indication: FOETAL EXPOSURE TIMING UNSPECIFIED
     Dosage: 1/2 DOSE, 1/2 DOSE 1 HOUR PRIOR TO BIRTH, TRANSPLACENTAL
     Route: 064
     Dates: start: 20120126, end: 20120126

REACTIONS (1)
  - Cyanosis [None]
